FAERS Safety Report 7301510-X (Version None)
Quarter: 2011Q1

REPORT INFORMATION
  Report Type: 
  Country: None (occurrence: None)
  Receive Date: 20110218
  Receipt Date: 20100920
  Transmission Date: 20110831
  Serious: Yes (Other)
  Sender: FDA-Public Use
  Company Number: US-BRISTOL-MYERS SQUIBB COMPANY-15296445

PATIENT
  Age: 56 Year
  Sex: Female

DRUGS (6)
  1. ADVAIR [Suspect]
     Dosage: 1 DF = 100/50 UNIT NOS
  2. PROMETRIUM [Suspect]
  3. PROAIR HFA [Suspect]
     Dates: start: 20100829
  4. NASONEX [Suspect]
  5. KENALOG [Suspect]
     Indication: ASTHMA
     Dates: start: 20090829
  6. MULTI-VITAMIN [Concomitant]

REACTIONS (1)
  - CUSHING'S SYNDROME [None]
